FAERS Safety Report 4815691-0 (Version None)
Quarter: 2005Q4

REPORT INFORMATION
  Report Type: 
  Country: None (occurrence: None)
  Receive Date: 20051031
  Receipt Date: 20040729
  Transmission Date: 20060501
  Serious: Yes (Hospitalization)
  Sender: FDA-Public Use
  Company Number: GB-SOLVAY-00205003480

PATIENT
  Age: 970 Month
  Sex: Female
  Weight: 70 kg

DRUGS (2)
  1. BENDROFLUAZIDE [Concomitant]
     Indication: ILL-DEFINED DISORDER
     Dosage: DAILY DOSE:  UNKNOWN
     Route: 048
  2. PERINDOPRIL [Suspect]
     Indication: CARDIAC FAILURE CONGESTIVE
     Dosage: DAILY DOSE:  UNKNOWN
     Route: 048
     Dates: start: 20010710

REACTIONS (1)
  - HIP FRACTURE [None]
